FAERS Safety Report 4822438-0 (Version None)
Quarter: 2005Q4

REPORT INFORMATION
  Report Type: 
  Country: None (occurrence: None)
  Receive Date: 20051104
  Receipt Date: 20051104
  Transmission Date: 20060501
  Serious: No
  Sender: FDA-Public Use
  Company Number: None

PATIENT

DRUGS (3)
  1. LEXAPRO [Suspect]
     Dosage: TABLET
  2. LIPITOR [Suspect]
     Dosage: TABLET
  3. CRESTOR [Suspect]
     Dosage: TABLET

REACTIONS (7)
  - CRYING [None]
  - DRUG DISPENSING ERROR [None]
  - DRUG WITHDRAWAL SYNDROME [None]
  - HEADACHE [None]
  - MEDICATION ERROR [None]
  - PAIN [None]
  - WRONG DRUG ADMINISTERED [None]
